FAERS Safety Report 5627582-6 (Version None)
Quarter: 2008Q1

REPORT INFORMATION
  Report Type: 
  Country: None (occurrence: None)
  Receive Date: 20080214
  Receipt Date: 20080214
  Transmission Date: 20080703
  Serious: Yes (Other)
  Sender: FDA-Public Use
  Company Number: None

PATIENT
  Age: 74 Year
  Sex: Female
  Weight: 90.7194 kg

DRUGS (1)
  1. BOTOX [Suspect]
     Indication: FACIAL PALSY
     Dosage: 3 TO 4 TIMES/YEAR
     Dates: start: 19940102, end: 20071105

REACTIONS (1)
  - GASTROINTESTINAL DISORDER [None]
